FAERS Safety Report 24825623 (Version 1)
Quarter: 2025Q1

REPORT INFORMATION
  Report Type: Spontaneous
  Country: US (occurrence: US)
  Receive Date: 20250109
  Receipt Date: 20250109
  Transmission Date: 20250408
  Serious: Yes (Other)
  Sender: PFIZER
  Company Number: US-PFIZER INC-202500002589

PATIENT
  Age: 53 Year
  Sex: Female
  Weight: 117.93 kg

DRUGS (1)
  1. PAXLOVID [Suspect]
     Active Substance: NIRMATRELVIR\RITONAVIR
     Indication: COVID-19 treatment
     Dosage: [NIRMATRELVIR 300 MG]/[RITONAVIR 100 MG]; 2X/DAY
     Route: 048
     Dates: start: 20250102, end: 20250105

REACTIONS (12)
  - Hallucination [Recovered/Resolved]
  - Delusion [Recovered/Resolved]
  - Psychotic disorder [Recovered/Resolved]
  - Abnormal dreams [Recovered/Resolved]
  - Decreased appetite [Recovered/Resolved]
  - Feeling abnormal [Recovered/Resolved]
  - Muscle spasms [Recovered/Resolved]
  - Heart rate increased [Unknown]
  - Dysgeusia [Not Recovered/Not Resolved]
  - Paraesthesia [Recovered/Resolved]
  - Lip swelling [Not Recovered/Not Resolved]
  - Chapped lips [Not Recovered/Not Resolved]

NARRATIVE: CASE EVENT DATE: 20250101
